FAERS Safety Report 13698261 (Version 25)
Quarter: 2020Q4

REPORT INFORMATION
  Report Type: Spontaneous
  Country: CA (occurrence: CA)
  Receive Date: 20170628
  Receipt Date: 20201207
  Transmission Date: 20210113
  Serious: Yes (Other)
  Sender: FDA-Public Use
  Company Number: CA-CELLTRION INC.-2017CA007961

PATIENT

DRUGS (34)
  1. INFLECTRA [Suspect]
     Active Substance: INFLIXIMAB-DYYB
     Indication: COLITIS ULCERATIVE
     Dosage: 318 MG, (0,2,6 WEEKS THEN EVERY 8 WEEKS)
     Route: 042
     Dates: start: 20170613, end: 201706
  2. INFLECTRA [Suspect]
     Active Substance: INFLIXIMAB-DYYB
     Dosage: 615 MG, (EVERY 6 WEEKS)
     Route: 042
     Dates: start: 20180110
  3. INFLECTRA [Suspect]
     Active Substance: INFLIXIMAB-DYYB
     Dosage: 615 MG, (EVERY 6 WEEKS)
     Route: 042
     Dates: start: 20180221
  4. INFLECTRA [Suspect]
     Active Substance: INFLIXIMAB-DYYB
     Dosage: 700 MG, (EVERY 8 WEEKS)
     Route: 042
     Dates: start: 20180712, end: 20200831
  5. INFLECTRA [Suspect]
     Active Substance: INFLIXIMAB-DYYB
     Dosage: 700 MG, (EVERY 8 WEEKS)
     Route: 042
     Dates: start: 20191016
  6. PREDNISONE. [Concomitant]
     Active Substance: PREDNISONE
     Dosage: 20 MG (TAPER DOSE OVER 1 MONTH)
     Route: 065
     Dates: start: 202008
  7. BUDESONIDE. [Concomitant]
     Active Substance: BUDESONIDE
     Dosage: 9 MG, DAILY
     Dates: start: 2020
  8. INFLECTRA [Suspect]
     Active Substance: INFLIXIMAB-DYYB
     Dosage: 700 MG, (EVERY 8 WEEKS)
     Route: 042
     Dates: start: 20191211
  9. INFLECTRA [Suspect]
     Active Substance: INFLIXIMAB-DYYB
     Dosage: 700 MG, (EVERY 8 WEEKS)
     Route: 042
     Dates: start: 20200205
  10. INFLECTRA [Suspect]
     Active Substance: INFLIXIMAB-DYYB
     Dosage: 700 MG, (EVERY 8 WEEKS)
     Route: 042
     Dates: start: 20200831
  11. INFLECTRA [Suspect]
     Active Substance: INFLIXIMAB-DYYB
     Dosage: 700 MG, (EVERY 6 WEEKS)
     Route: 042
     Dates: start: 20201027
  12. CIPROFLOXACIN. [Concomitant]
     Active Substance: CIPROFLOXACIN
     Dosage: UNK
     Route: 048
  13. VANCOMYCIN [Concomitant]
     Active Substance: VANCOMYCIN
     Dosage: 125 MG, 2X/DAY FOR 8 WEEKS
     Route: 048
  14. INFLECTRA [Suspect]
     Active Substance: INFLIXIMAB-DYYB
     Dosage: 615 MG, EVERY 8 WEEKS
     Route: 042
     Dates: start: 20170613, end: 20171018
  15. VITAMIN D [Concomitant]
     Active Substance: VITAMIN D NOS
     Indication: SUPPLEMENTATION THERAPY
     Dosage: UNK
     Route: 065
  16. INFLECTRA [Suspect]
     Active Substance: INFLIXIMAB-DYYB
     Dosage: 700 MG, (EVERY 8 WEEKS)
     Route: 042
     Dates: start: 20200515
  17. PENTASA [Concomitant]
     Active Substance: MESALAMINE
     Dosage: 2 DF(TABLETS), 2X/DAY
     Route: 048
     Dates: start: 201512
  18. PREDNISONE. [Concomitant]
     Active Substance: PREDNISONE
     Dosage: 40 MG, 1X/DAY
     Route: 048
  19. INFLECTRA [Suspect]
     Active Substance: INFLIXIMAB-DYYB
     Dosage: 615 MG, (EVERY 6 WEEKS)
     Route: 042
  20. INFLECTRA [Suspect]
     Active Substance: INFLIXIMAB-DYYB
     Dosage: 615 MG, EVERY 6 WEEKS
     Route: 042
     Dates: start: 20180404
  21. INFLECTRA [Suspect]
     Active Substance: INFLIXIMAB-DYYB
     Dosage: 615 MG, (EVERY 6 WEEKS)
     Route: 042
     Dates: end: 20180516
  22. DALTEPARIN [Concomitant]
     Active Substance: DALTEPARIN
     Dosage: UNK, 1X/DAY
     Route: 058
  23. PREDNISONE. [Concomitant]
     Active Substance: PREDNISONE
     Dosage: 40 MG, 1X/DAY
     Route: 048
  24. FLAGYL [Concomitant]
     Active Substance: METRONIDAZOLE\METRONIDAZOLE HYDROCHLORIDE
     Dosage: UNK
     Route: 048
  25. VANCOMYCIN [Concomitant]
     Active Substance: VANCOMYCIN
     Dosage: 500 MG, 1X/DAY
     Route: 048
     Dates: start: 2017
  26. VANCOMYCIN [Concomitant]
     Active Substance: VANCOMYCIN
     Dosage: 500 MG, 2X/DAY
     Route: 048
  27. INFLECTRA [Suspect]
     Active Substance: INFLIXIMAB-DYYB
     Dosage: 600 MG, (EVERY 8 WEEKS)
     Route: 042
     Dates: start: 20170621, end: 2017
  28. INFLECTRA [Suspect]
     Active Substance: INFLIXIMAB-DYYB
     Dosage: UNK
     Route: 042
     Dates: start: 20190306
  29. INFLECTRA [Suspect]
     Active Substance: INFLIXIMAB-DYYB
     Dosage: 700 MG, (EVERY 8 WEEKS)
     Route: 042
     Dates: start: 20200706
  30. INFLECTRA [Suspect]
     Active Substance: INFLIXIMAB-DYYB
     Dosage: 615 MG (EVERY 6 WEEKS)
     Route: 042
     Dates: start: 20171129, end: 20180516
  31. INFLECTRA [Suspect]
     Active Substance: INFLIXIMAB-DYYB
     Dosage: 700 MG, (EVERY 8 WEEKS)
     Route: 042
     Dates: start: 20190430
  32. INFLECTRA [Suspect]
     Active Substance: INFLIXIMAB-DYYB
     Dosage: 700 MG, (EVERY 8 WEEKS)
     Route: 042
     Dates: start: 20191211
  33. CALCIUM [Concomitant]
     Active Substance: CALCIUM
     Indication: SUPPLEMENTATION THERAPY
     Dosage: UNK, 2X/DAY
     Route: 048
  34. PREDNISONE. [Concomitant]
     Active Substance: PREDNISONE
     Dosage: UNK, AS NEEDED
     Route: 042
     Dates: start: 201512

REACTIONS (17)
  - Large intestine polyp [Unknown]
  - Influenza [Recovered/Resolved]
  - Blood pressure decreased [Unknown]
  - Weight increased [Not Recovered/Not Resolved]
  - Sinusitis [Recovered/Resolved]
  - Hiatus hernia [Unknown]
  - Clostridium difficile colitis [Recovering/Resolving]
  - Therapeutic response shortened [Unknown]
  - Condition aggravated [Recovering/Resolving]
  - Neoplasm malignant [Unknown]
  - Off label use [Unknown]
  - Weight decreased [Unknown]
  - Disease recurrence [Unknown]
  - Inappropriate schedule of product administration [Unknown]
  - Drug level above therapeutic [Recovered/Resolved]
  - Faecal calprotectin increased [Unknown]
  - Tooth infection [Unknown]

NARRATIVE: CASE EVENT DATE: 2017
